FAERS Safety Report 22518249 (Version 1)
Quarter: 2023Q2

REPORT INFORMATION
  Report Type: Spontaneous
  Country: US (occurrence: US)
  Receive Date: 20230605
  Receipt Date: 20230605
  Transmission Date: 20230721
  Serious: No
  Sender: FDA-Public Use
  Company Number: US-APOTEX-2023AP000132

PATIENT
  Age: 73 Year
  Sex: Female

DRUGS (3)
  1. BICALUTAMIDE [Suspect]
     Active Substance: BICALUTAMIDE
     Indication: Ovarian granulosa cell tumour
     Dosage: 50 MILLIGRAM, QD
     Route: 048
  2. LEUPROLIDE ACETATE [Suspect]
     Active Substance: LEUPROLIDE ACETATE
     Indication: Ovarian granulosa cell tumour
     Dosage: 7.5 MILLIGRAM, EVERY-FOUR WEEKS
     Route: 030
  3. EXEMESTANE [Suspect]
     Active Substance: EXEMESTANE
     Indication: Ovarian granulosa cell tumour
     Dosage: UNK, QD
     Route: 048

REACTIONS (1)
  - Fatigue [Unknown]
